FAERS Safety Report 10076116 (Version 2)
Quarter: 2014Q2

REPORT INFORMATION
  Report Type: Report from Study
  Country: US (occurrence: US)
  Receive Date: 20140414
  Receipt Date: 20140530
  Transmission Date: 20141212
  Serious: Yes (Hospitalization)
  Sender: FDA-Public Use
  Company Number: US-ALEXION-A201401185

PATIENT
  Sex: 0

DRUGS (14)
  1. ECULIZUMAB [Suspect]
     Indication: HAEMOLYTIC URAEMIC SYNDROME
     Dosage: 300 MG/KG, UNK
     Route: 042
  2. ECULIZUMAB [Suspect]
     Dosage: 900 MG, Q2W
     Route: 042
     Dates: start: 20140219
  3. AMLODIPINE BESYLATE [Concomitant]
     Indication: PRODUCT USED FOR UNKNOWN INDICATION
     Dosage: 5 MG, QD
     Route: 048
  4. VERAMYST [Concomitant]
     Indication: MULTIPLE ALLERGIES
     Dosage: UNK UNK, QD
     Route: 045
  5. RENVELA [Concomitant]
     Indication: PRODUCT USED FOR UNKNOWN INDICATION
     Dosage: 800 MG, TID
     Route: 048
  6. RENVELA [Concomitant]
     Dosage: 1600 MG, TID
     Route: 048
  7. SENSIPAR [Concomitant]
     Indication: PRODUCT USED FOR UNKNOWN INDICATION
     Dosage: 30 MG, QD
     Route: 048
  8. ONDANSETRON HCL [Concomitant]
     Indication: NAUSEA
     Dosage: 4 MG, PRN
     Route: 048
  9. VALIUM [Concomitant]
     Indication: ANXIETY
     Dosage: 2 MG, BID
     Route: 048
  10. VALIUM [Concomitant]
     Dosage: 2 MG, ADDITIONAL QD
  11. SERTRALINE HCL [Concomitant]
     Indication: PRODUCT USED FOR UNKNOWN INDICATION
     Dosage: 200 MG, QD
     Route: 048
  12. PRINIVIL [Concomitant]
     Indication: PRODUCT USED FOR UNKNOWN INDICATION
     Dosage: 10 MG, QD
     Route: 048
  13. DEPO-PROVERA [Concomitant]
     Indication: PRODUCT USED FOR UNKNOWN INDICATION
     Route: 058
  14. LISINOPRIL [Concomitant]
     Indication: HYPERTENSION
     Dosage: 10 MG, QD IN THE MORNING
     Route: 065

REACTIONS (1)
  - Hypertension [Not Recovered/Not Resolved]
